FAERS Safety Report 11792042 (Version 4)
Quarter: 2020Q1

REPORT INFORMATION
  Report Type: Spontaneous
  Country: FR (occurrence: FR)
  Receive Date: 20151201
  Receipt Date: 20200317
  Transmission Date: 20200409
  Serious: Yes (Congenital Anomaly)
  Sender: FDA-Public Use
  Company Number: FR-ALLERGAN-1512800US

PATIENT

DRUGS (4)
  1. JUVEDERM [Concomitant]
     Active Substance: HYALURONIC ACID
     Indication: PRODUCT USED FOR UNKNOWN INDICATION
     Dosage: UNK, SINGLE
     Dates: start: 20150619, end: 20150619
  2. VISTABEL [Suspect]
     Active Substance: BOTULINUM TOXIN TYPE A
     Dosage: UNK, SINGLE
     Route: 064
     Dates: start: 20160619, end: 20160619
  3. VISTABEL [Suspect]
     Active Substance: BOTULINUM TOXIN TYPE A
     Dosage: UNK, SINGLE
     Route: 064
     Dates: start: 20160619, end: 20160619
  4. VISTABEL [Suspect]
     Active Substance: BOTULINUM TOXIN TYPE A
     Indication: EXPOSURE DURING PREGNANCY
     Dosage: UNK, SINGLE
     Route: 064
     Dates: start: 20160619, end: 20160619

REACTIONS (1)
  - Congenital central nervous system anomaly [Unknown]

NARRATIVE: CASE EVENT DATE: 201511
